FAERS Safety Report 11031267 (Version 1)
Quarter: 2015Q2

REPORT INFORMATION
  Report Type: Spontaneous
  Country: CA (occurrence: CA)
  Receive Date: 20150415
  Receipt Date: 20150415
  Transmission Date: 20150821
  Serious: Yes (Other)
  Sender: FDA-Public Use
  Company Number: CA-TEVA-554234ACC

PATIENT
  Sex: Male
  Weight: 111.23 kg

DRUGS (5)
  1. ENTERIC COATED ASA [Concomitant]
     Active Substance: ASPIRIN
     Dosage: UNKNOWN FORM STRENGTH
     Route: 065
  2. BRILINTA [Concomitant]
     Active Substance: TICAGRELOR
     Dosage: UNKNOWN FORM STRENGTH
     Route: 065
  3. COVERSYL - 2MG TAB [Concomitant]
     Dosage: UNKNOWN FORM STRENGTH
     Route: 065
  4. TEVA-OLANZAPINE [Suspect]
     Active Substance: OLANZAPINE
     Indication: SCHIZOPHRENIA
     Route: 048
  5. LIPITOR [Concomitant]
     Active Substance: ATORVASTATIN CALCIUM
     Dosage: UNKNOWN FORM STRENGTH
     Route: 065

REACTIONS (4)
  - Nausea [Unknown]
  - Constipation [Unknown]
  - Dry mouth [Unknown]
  - Myocardial infarction [Unknown]
